FAERS Safety Report 13075162 (Version 3)
Quarter: 2017Q1

REPORT INFORMATION
  Report Type: Report from Study
  Country: BR (occurrence: BR)
  Receive Date: 20161230
  Receipt Date: 20170130
  Transmission Date: 20170428
  Serious: Yes (Other)
  Sender: FDA-Public Use
  Company Number: PHHY2016BR180011

PATIENT
  Sex: Female
  Weight: 70 kg

DRUGS (4)
  1. GILENYA [Suspect]
     Active Substance: FINGOLIMOD HYDROCHLORIDE
     Indication: MULTIPLE SCLEROSIS
     Dosage: 0.5 MG, QD
     Route: 048
     Dates: start: 201312
  2. BACLOFEN. [Concomitant]
     Active Substance: BACLOFEN
     Indication: MUSCULOSKELETAL STIFFNESS
     Dosage: 10 DF, TID
     Route: 048
  3. PURAN [Concomitant]
     Active Substance: LEVOTHYROXINE SODIUM
     Indication: HYPERTHYROIDISM
     Dosage: 65 MG, QD
     Route: 048
  4. GABAPENTIN. [Concomitant]
     Active Substance: GABAPENTIN
     Indication: PAIN
     Dosage: 300 MG, QID
     Route: 048

REACTIONS (4)
  - Optic nerve disorder [Unknown]
  - Abnormal sensation in eye [Unknown]
  - Eye infection [Unknown]
  - Vision blurred [Recovering/Resolving]
